FAERS Safety Report 16644449 (Version 1)
Quarter: 2019Q3

REPORT INFORMATION
  Report Type: Spontaneous
  Country: US (occurrence: ZA)
  Receive Date: 20190729
  Receipt Date: 20190729
  Transmission Date: 20191004
  Serious: Yes (Hospitalization, Other)
  Sender: FDA-Public Use
  Company Number: ZA-STI PHARMA LLC-2071451

PATIENT
  Age: 32 Year
  Sex: Female
  Weight: 55 kg

DRUGS (11)
  1. ETHAMBUTOL HYDROCHLORIDE. [Suspect]
     Active Substance: ETHAMBUTOL HYDROCHLORIDE
     Dates: start: 20190603
  2. BEDAQUILINE [Suspect]
     Active Substance: BEDAQUILINE
     Dates: start: 20190603
  3. RITONAVIR. [Concomitant]
     Active Substance: RITONAVIR
  4. PYRIDOXINE HYDROCHLORIDE. [Concomitant]
     Active Substance: PYRIDOXINE HYDROCHLORIDE
  5. DELAMINID [Suspect]
     Active Substance: DELAMANID
     Route: 048
     Dates: start: 20190603
  6. TERIZIDONE [Suspect]
     Active Substance: TERIZIDONE
     Dates: start: 20190603
  7. CLOFAZIMINE [Suspect]
     Active Substance: CLOFAZIMINE
     Dates: start: 20190603
  8. LEVOFLOXACIN. [Suspect]
     Active Substance: LEVOFLOXACIN
     Route: 048
     Dates: start: 20190603
  9. ISONIAZID. [Suspect]
     Active Substance: ISONIAZID
     Dates: start: 20190603
  10. ATAZANAVIR. [Concomitant]
     Active Substance: ATAZANAVIR
  11. ABACAVIR AND LAMIVUDINE [Concomitant]
     Active Substance: ABACAVIR SULFATE\LAMIVUDINE

REACTIONS (5)
  - Hypotension [Unknown]
  - Tonic clonic movements [Recovering/Resolving]
  - Anaemia [Unknown]
  - Blood electrolytes abnormal [Unknown]
  - Papular pruritic eruption of HIV [Unknown]

NARRATIVE: CASE EVENT DATE: 20190609
